FAERS Safety Report 4279366-1 (Version None)
Quarter: 2004Q1

REPORT INFORMATION
  Report Type: 
  Country: None (occurrence: None)
  Receive Date: 20040123
  Receipt Date: 20040107
  Transmission Date: 20041129
  Serious: Yes (Hospitalization)
  Sender: FDA-Public Use
  Company Number: 230032K03FRA

PATIENT
  Sex: Male
  Weight: 82 kg

DRUGS (9)
  1. REBIF [Suspect]
     Indication: MULTIPLE SCLEROSIS
     Dosage: 44 MCG 3 IN 1 WEEKS SUBCUTANEOUS
     Route: 058
  2. BACLOFEN [Suspect]
     Indication: DIFFICULTY IN WALKING
     Dosage: 2 DOSAGE FORMS, 3 IN 1 DAYS, PER ORAL
     Route: 048
  3. VASOBRAL [Suspect]
     Dosage: 1 DOSAGE FORMS, 3 IN 1 DAYS, PER ORAL
     Route: 048
  4. MODAFINIL [Suspect]
     Dosage: 3 DOSAGE FORMS, 3 IN 1 DAYS, PER ORAL
     Route: 048
  5. ZOPICLONE [Suspect]
     Indication: DEPRESSION
     Dosage: 0.5 NOT REPORTED, 1 IN 1 DAYS, NOT REPORTED
  6. MIANSERIN [Suspect]
     Indication: DEPRESSION
     Dosage: NOT REPORTED, 1 IN 1 DAYS NOT REPORTED
  7. FENOFIBRATE [Suspect]
     Indication: HYPERCHOLESTEROLAEMIA
     Dosage: NOT REPORTED 1 IN 1 DAYS, NOT REPORTED
  8. OXYBUTYNIN [Suspect]
     Dosage: NOT REPORTED, 2 IN 1 DAYS, NOT REPORTED
  9. DANTROLENE SODIUM [Suspect]
     Dosage: NOT REPORTED, 3 IN 1 DAYS, NOT REPORTED

REACTIONS (3)
  - FEELING DRUNK [None]
  - MALAISE [None]
  - SYNCOPE [None]
